FAERS Safety Report 4563972-0 (Version None)
Quarter: 2005Q1

REPORT INFORMATION
  Report Type: 
  Country: None (occurrence: None)
  Receive Date: 20050128
  Receipt Date: 20050118
  Transmission Date: 20050727
  Serious: No
  Sender: FDA-Public Use
  Company Number: JP-JNJFOC-20041206967

PATIENT
  Age: 67 Year
  Sex: Male

DRUGS (4)
  1. ITRIZOLE [Suspect]
     Route: 049
  2. ITRIZOLE [Suspect]
     Indication: ONYCHOMYCOSIS
     Route: 049
  3. CANDESARTAN CILEXETIL [Concomitant]
     Indication: HYPERTENSION
     Route: 049
  4. TANDOSPIRONE CITRATE [Concomitant]
     Indication: IRRITABLE BOWEL SYNDROME
     Route: 049

REACTIONS (1)
  - BLOOD PRESSURE DECREASED [None]
